FAERS Safety Report 5812153-9 (Version None)
Quarter: 2008Q3

REPORT INFORMATION
  Report Type: 
  Country: None (occurrence: None)
  Receive Date: 20080711
  Receipt Date: 20080626
  Transmission Date: 20090109
  Serious: Yes (Hospitalization)
  Sender: FDA-Public Use
  Company Number: DSA_32093_2008

PATIENT
  Age: 80 Year
  Sex: Female

DRUGS (4)
  1. DILTIAZEM HYDROCHLORIDE [Suspect]
     Indication: MYOCARDIAL INFARCTION
     Dosage: 200 MG QD ORAL
     Route: 048
     Dates: start: 19980101, end: 20080601
  2. DILTIAZEM HYDROCHLORIDE [Suspect]
     Indication: DRUG USE FOR UNKNOWN INDICATION
     Dosage: 60 MG QD
     Dates: start: 20080101
  3. ROPINIROLE HYDROCHLORIDE [Suspect]
     Indication: RESTLESS LEGS SYNDROME
     Dosage: 2 MG BID ORAL), (STARTING DOSE UNKNOWN, BUT PROGRESSIVELY INCREASED TO 2 MG BID ORAL), (1 MG BID)
     Route: 048
     Dates: start: 20070101, end: 20080601
  4. ROPINIROLE HYDROCHLORIDE [Suspect]
     Indication: RESTLESS LEGS SYNDROME
     Dosage: 2 MG BID ORAL), (STARTING DOSE UNKNOWN, BUT PROGRESSIVELY INCREASED TO 2 MG BID ORAL), (1 MG BID)
     Route: 048
     Dates: start: 20080601

REACTIONS (5)
  - DIZZINESS [None]
  - DRUG INTERACTION [None]
  - FALL [None]
  - HEAD INJURY [None]
  - HYPOTENSION [None]
